FAERS Safety Report 20530231 (Version 2)
Quarter: 2022Q1

REPORT INFORMATION
  Report Type: Spontaneous
  Country: US (occurrence: US)
  Receive Date: 20220301
  Receipt Date: 20220307
  Transmission Date: 20220423
  Serious: No
  Sender: FDA-Public Use
  Company Number: US-AMGEN-USASP2022032937

PATIENT
  Age: 78 Year
  Sex: Male

DRUGS (5)
  1. AIMOVIG [Suspect]
     Active Substance: ERENUMAB-AOOE
     Indication: Migraine
     Dosage: 70 MILLIGRAM, QMO
     Route: 065
  2. ACETAMINOPHEN [Concomitant]
     Active Substance: ACETAMINOPHEN
     Dosage: UNK
     Route: 065
  3. ZOMIG [Concomitant]
     Active Substance: ZOLMITRIPTAN
     Dosage: UNK
     Route: 065
  4. BUTALBITAL [Concomitant]
     Active Substance: BUTALBITAL
     Dosage: UNK
     Route: 065
  5. IMITREX [Concomitant]
     Active Substance: SUMATRIPTAN SUCCINATE

REACTIONS (5)
  - Therapeutic response shortened [Unknown]
  - Accidental exposure to product [Unknown]
  - Wrong technique in product usage process [Unknown]
  - Product storage error [Unknown]
  - Device difficult to use [Unknown]

NARRATIVE: CASE EVENT DATE: 20220223
